FAERS Safety Report 8450754-2 (Version None)
Quarter: 2012Q2

REPORT INFORMATION
  Report Type: 
  Country: None (occurrence: None)
  Receive Date: 20120620
  Receipt Date: 20120529
  Transmission Date: 20120825
  Serious: Yes (Hospitalization, Other)
  Sender: FDA-Public Use
  Company Number: IT-PFIZER INC-2012129832

PATIENT
  Age: 88 Year
  Sex: Male

DRUGS (11)
  1. RANEXA [Concomitant]
  2. BENEXOL [Concomitant]
  3. COUMADIN [Concomitant]
  4. OMEPRAZOLE [Concomitant]
  5. ENALAPRIL MALEATE [Suspect]
     Indication: HYPERTENSION
     Dosage: 5 MG (ONE DOSE FORM), DAILY
     Route: 048
     Dates: start: 20101201, end: 20110113
  6. DEURSIL [Concomitant]
  7. BISOPROLOL FUMARATE [Suspect]
     Indication: CARDIAC FAILURE
     Dosage: 2.5 MG (TWO DOSE FORM), DAILY
     Route: 048
     Dates: start: 20101201, end: 20110113
  8. FOLINA [Concomitant]
  9. FERROUS SULFATE TAB [Concomitant]
  10. CORDARONE [Suspect]
     Indication: ATRIAL FIBRILLATION
     Dosage: 200 MG, DAILY
     Route: 048
     Dates: start: 20080113
  11. LASIX [Suspect]
     Dosage: 125 MG, DAILY
     Route: 048
     Dates: start: 20101201, end: 20110113

REACTIONS (3)
  - HYPOTENSION [None]
  - HYPOTHYROIDISM [None]
  - BLOOD CREATININE INCREASED [None]
